FAERS Safety Report 9461832 (Version 1)
Quarter: 2013Q3

REPORT INFORMATION
  Report Type: Spontaneous
  Country: US (occurrence: None)
  Receive Date: 20130815
  Receipt Date: 20130815
  Transmission Date: 20140515
  Serious: Yes (Hospitalization)
  Sender: FDA-Public Use
  Company Number: None

PATIENT
  Age: 17 Year
  Sex: Male
  Weight: 60 kg

DRUGS (2)
  1. ABILIFY [Suspect]
     Dosage: ONCE DAILY TAKEN BY MOUTH
     Route: 048
     Dates: start: 20121031, end: 20130820
  2. CLONAZEPAM [Suspect]
     Dosage: ONCE DAILY  TAKEN UNDER THE TONGUE?10/24/2012 - 08/22/2013
     Route: 060
     Dates: start: 20121024

REACTIONS (15)
  - Vomiting [None]
  - Dizziness [None]
  - Dry mouth [None]
  - Hyperhidrosis [None]
  - Dysuria [None]
  - Dyskinesia [None]
  - Anger [None]
  - Aggression [None]
  - Abnormal behaviour [None]
  - Cough [None]
  - Dyspnoea [None]
  - Lung disorder [None]
  - Amnesia [None]
  - Genital disorder male [None]
  - Somnolence [None]
